FAERS Safety Report 17968430 (Version 1)
Quarter: 2020Q3

REPORT INFORMATION
  Report Type: Spontaneous
  Country: US (occurrence: US)
  Receive Date: 20200701
  Receipt Date: 20200701
  Transmission Date: 20201103
  Serious: Yes (Hospitalization)
  Sender: FDA-Public Use
  Company Number: None

PATIENT
  Age: 37 Year
  Sex: Female

DRUGS (9)
  1. LEXAPRO [Concomitant]
     Active Substance: ESCITALOPRAM OXALATE
  2. LOESTRIN 24 [Concomitant]
  3. CEFDINIR. [Concomitant]
     Active Substance: CEFDINIR
  4. PREDNISONE. [Concomitant]
     Active Substance: PREDNISONE
  5. AMMONIUM LACTATE. [Concomitant]
     Active Substance: AMMONIUM LACTATE
  6. AMLODIPINE [Concomitant]
     Active Substance: AMLODIPINE BESYLATE
  7. AIMOVIG [Concomitant]
     Active Substance: ERENUMAB-AOOE
  8. FLUOXETINE [Concomitant]
     Active Substance: FLUOXETINE HYDROCHLORIDE
  9. COSENTYX [Suspect]
     Active Substance: SECUKINUMAB
     Indication: SPONDYLOARTHROPATHY
     Dosage: FREQUENCY: Q4WEEKS
     Route: 058
     Dates: start: 20200303

REACTIONS (2)
  - Constipation [None]
  - Cholecystectomy [None]

NARRATIVE: CASE EVENT DATE: 20200622
